FAERS Safety Report 24202341 (Version 2)
Quarter: 2024Q3

REPORT INFORMATION
  Report Type: Report from Study
  Country: US (occurrence: US)
  Receive Date: 20240812
  Receipt Date: 20240820
  Transmission Date: 20241017
  Serious: No
  Sender: ABBVIE
  Company Number: US-ABBVIE-5867553

PATIENT
  Sex: Male
  Weight: 99.79 kg

DRUGS (8)
  1. CREON [Suspect]
     Active Substance: PANCRELIPASE AMYLASE\PANCRELIPASE LIPASE\PANCRELIPASE PROTEASE
     Indication: Pancreatic failure
     Route: 048
     Dates: start: 201105
  2. CREON [Suspect]
     Active Substance: PANCRELIPASE AMYLASE\PANCRELIPASE LIPASE\PANCRELIPASE PROTEASE
     Indication: Pancreatic failure
     Dosage: LAST ADMIN : 2024, ?2400UNITS WITH MEALS AND 1200 WITH SNACKS
     Route: 048
     Dates: start: 202404
  3. CREON [Suspect]
     Active Substance: PANCRELIPASE AMYLASE\PANCRELIPASE LIPASE\PANCRELIPASE PROTEASE
     Indication: Pancreatic failure
     Dosage: 4800 UNIT WITH MEALS TO BE ABLE TO DIGEST HIS?FOODS, LAST ADMIN : 2024
     Route: 048
     Dates: start: 20240722
  4. CREON [Suspect]
     Active Substance: PANCRELIPASE AMYLASE\PANCRELIPASE LIPASE\PANCRELIPASE PROTEASE
     Indication: Pancreatic failure
     Dosage: FORM STRENGTH: 12000?FORM STRENGTH UNITS: UNIT?2 CAPS WITH MEALS; 1 CAP WITH SNACKS
     Route: 048
     Dates: start: 2012
  5. CREON [Suspect]
     Active Substance: PANCRELIPASE AMYLASE\PANCRELIPASE LIPASE\PANCRELIPASE PROTEASE
     Indication: Pancreatic failure
     Dosage: INCREASED DOSAGE, ?4 CAPS PER MEAL, ?FIRST ADMIN : 2024
     Route: 048
  6. TERAZOSIN [Concomitant]
     Active Substance: TERAZOSIN HYDROCHLORIDE
     Indication: Hypertension
     Route: 065
  7. GABAPENTIN [Concomitant]
     Active Substance: GABAPENTIN
     Indication: Nerve injury
     Route: 065
  8. NIFEDIPINE [Concomitant]
     Active Substance: NIFEDIPINE
     Indication: Hypertension
     Route: 065

REACTIONS (15)
  - Cold sweat [Recovered/Resolved with Sequelae]
  - Hypertension [Recovering/Resolving]
  - Abdominal discomfort [Recovered/Resolved with Sequelae]
  - Product packaging quantity issue [Not Recovered/Not Resolved]
  - Diarrhoea [Recovered/Resolved with Sequelae]
  - Malaise [Recovered/Resolved with Sequelae]
  - Anxiety [Recovered/Resolved with Sequelae]
  - Drug ineffective [Not Recovered/Not Resolved]
  - Dyspepsia [Unknown]
  - Adverse food reaction [Recovered/Resolved]
  - Feeding disorder [Unknown]
  - Adverse drug reaction [Unknown]
  - Malaise [Unknown]
  - Unevaluable event [Unknown]
  - Abdominal pain [Recovering/Resolving]

NARRATIVE: CASE EVENT DATE: 20150101
